FAERS Safety Report 5165423-4 (Version None)
Quarter: 2006Q4

REPORT INFORMATION
  Report Type: 
  Country: None (occurrence: None)
  Receive Date: 20061206
  Receipt Date: 20061201
  Transmission Date: 20070319
  Serious: Yes (Hospitalization)
  Sender: FDA-Public Use
  Company Number: SE-AVENTIS-200622246GDDC

PATIENT
  Age: 76 Year
  Sex: Female

DRUGS (7)
  1. MINIRIN [Suspect]
  2. EFFEXOR [Suspect]
  3. LEVOTHYROXINE SODIUM [Concomitant]
  4. LACTULOSE [Concomitant]
  5. PROPIOMAZINE MALEATE [Concomitant]
  6. SIMVASTATIN [Concomitant]
  7. ACETYLSALICYLIC ACID SRT [Concomitant]

REACTIONS (2)
  - DRUG INTERACTION [None]
  - HYPONATRAEMIA [None]
